FAERS Safety Report 17369456 (Version 1)
Quarter: 2020Q1

REPORT INFORMATION
  Report Type: Spontaneous
  Country: SE (occurrence: SE)
  Receive Date: 20200204
  Receipt Date: 20200204
  Transmission Date: 20200409
  Serious: Yes (Hospitalization)
  Sender: FDA-Public Use
  Company Number: SE-TEVA-2020-SE-1180907

PATIENT
  Age: 72 Year
  Sex: Female

DRUGS (10)
  1. ATORVASTATIN [Suspect]
     Active Substance: ATORVASTATIN
     Indication: CORONARY ARTERY DISEASE
     Dosage: 80MG X1
     Route: 048
     Dates: start: 20181204, end: 20190207
  2. FURIX [Concomitant]
  3. NOVORAPID [Concomitant]
     Active Substance: INSULIN ASPART
  4. TRESIBA [Concomitant]
     Active Substance: INSULIN DEGLUDEC
  5. PROLIA [Concomitant]
     Active Substance: DENOSUMAB
  6. TROMBYL [Concomitant]
     Active Substance: ASPIRIN
  7. METOPROLOL. [Concomitant]
     Active Substance: METOPROLOL
  8. KALCIPOS D [Concomitant]
     Active Substance: CALCIUM CARBONATE\CHOLECALCIFEROL
  9. CANDERSATAN [Concomitant]
     Active Substance: CANDESARTAN
  10. OMEPRAZOL [Concomitant]
     Active Substance: OMEPRAZOLE

REACTIONS (1)
  - Cholestatic liver injury [Recovered/Resolved]

NARRATIVE: CASE EVENT DATE: 20190204
